FAERS Safety Report 7480795-3 (Version None)
Quarter: 2011Q2

REPORT INFORMATION
  Report Type: 
  Country: None (occurrence: None)
  Receive Date: 20110516
  Receipt Date: 20110502
  Transmission Date: 20111010
  Serious: Yes (Other)
  Sender: FDA-Public Use
  Company Number: US-ELI_LILLY_AND_COMPANY-US201007001298

PATIENT
  Sex: Female

DRUGS (10)
  1. CENTRUM SILVER [Concomitant]
  2. VITAMIN D [Concomitant]
  3. FORTEO [Suspect]
     Dosage: 20 UG, QD
  4. COUMADIN [Concomitant]
  5. VYTORIN [Concomitant]
  6. FORTEO [Suspect]
     Indication: OSTEOPOROSIS
     Dosage: 20 UG, DAILY (1/D)
     Dates: start: 20100602
  7. SOTALOL HCL [Concomitant]
  8. FORTEO [Suspect]
     Dosage: 20 UG, DAILY (1/D)
  9. ARTHROTEC [Concomitant]
  10. CALCIUM CARBONATE [Concomitant]

REACTIONS (9)
  - ARTHROPATHY [None]
  - CONTUSION [None]
  - INFECTION [None]
  - SKIN INJURY [None]
  - HEADACHE [None]
  - OEDEMA PERIPHERAL [None]
  - PHOTOSENSITIVITY REACTION [None]
  - HIP FRACTURE [None]
  - MYALGIA [None]
